FAERS Safety Report 20982851 (Version 1)
Quarter: 2022Q2

REPORT INFORMATION
  Report Type: Spontaneous
  Country: US (occurrence: US)
  Receive Date: 20220620
  Receipt Date: 20220620
  Transmission Date: 20220720
  Serious: Yes (Other)
  Sender: FDA-Public Use
  Company Number: US-NOVARTISPH-NVSC2022US138669

PATIENT
  Age: 62 Year
  Sex: Female

DRUGS (2)
  1. FINGOLIMOD [Suspect]
     Active Substance: FINGOLIMOD
     Indication: Primary progressive multiple sclerosis
     Dosage: UNK
     Route: 065
  2. DIMETHYL FUMARATE [Suspect]
     Active Substance: DIMETHYL FUMARATE
     Indication: Primary progressive multiple sclerosis
     Dosage: UNK
     Route: 065

REACTIONS (3)
  - Primary progressive multiple sclerosis [Unknown]
  - Disease progression [Unknown]
  - Product use in unapproved indication [Unknown]
